FAERS Safety Report 15186954 (Version 1)
Quarter: 2018Q3

REPORT INFORMATION
  Report Type: Report from Study
  Country: US (occurrence: US)
  Receive Date: 20180723
  Receipt Date: 20180723
  Transmission Date: 20181010
  Serious: No
  Sender: FDA-Public Use
  Company Number: US-EXELIXIS-CABO-18011960

PATIENT
  Sex: Male

DRUGS (8)
  1. COMETRIQ [Suspect]
     Active Substance: CABOZANTINIB S-MALATE
     Indication: THYROID CANCER
     Dosage: 60 MG, QD
     Route: 048
     Dates: start: 20171215
  2. COMETRIQ [Suspect]
     Active Substance: CABOZANTINIB S-MALATE
     Indication: LUNG NEOPLASM MALIGNANT
  3. ALBUTEROL. [Concomitant]
     Active Substance: ALBUTEROL
  4. ZYRTEC [Concomitant]
     Active Substance: CETIRIZINE HYDROCHLORIDE
  5. TRAMADOL. [Concomitant]
     Active Substance: TRAMADOL
  6. TYLENOL [Concomitant]
     Active Substance: ACETAMINOPHEN
  7. COMETRIQ [Suspect]
     Active Substance: CABOZANTINIB S-MALATE
     Indication: METASTASES TO LYMPH NODES
  8. PROBIOTIC [Concomitant]
     Active Substance: PROBIOTICS NOS

REACTIONS (9)
  - Diarrhoea [Recovered/Resolved]
  - Oropharyngeal pain [Unknown]
  - Expired product administered [Unknown]
  - Hair colour changes [Unknown]
  - Pain in extremity [Unknown]
  - Fatigue [Unknown]
  - Nausea [Recovering/Resolving]
  - Oral pain [Unknown]
  - Food intolerance [Unknown]
